FAERS Safety Report 9030650 (Version 2)
Quarter: 2013Q1

REPORT INFORMATION
  Report Type: Report from Study
  Country: DE (occurrence: DE)
  Receive Date: 20130123
  Receipt Date: 20130212
  Transmission Date: 20140127
  Serious: Yes (Hospitalization)
  Sender: FDA-Public Use
  Company Number: DE-ROCHE-1114341

PATIENT
  Age: 74 Year
  Sex: Male
  Weight: 85 kg

DRUGS (11)
  1. RITUXIMAB [Suspect]
     Indication: CHRONIC LYMPHOCYTIC LEUKAEMIA
     Dosage: DAY 1/DAY 28
     Route: 042
     Dates: start: 20120524, end: 20120831
  2. CHLORAMBUCIL [Suspect]
     Indication: CHRONIC LYMPHOCYTIC LEUKAEMIA
     Route: 048
     Dates: start: 20120524, end: 20120831
  3. MARCOUMAR [Concomitant]
     Route: 065
     Dates: start: 20100208, end: 20120831
  4. EDARBI [Concomitant]
     Route: 065
     Dates: start: 20120511
  5. HCTZ [Concomitant]
     Route: 065
     Dates: start: 2009
  6. XALATAN [Concomitant]
     Route: 065
     Dates: start: 2007
  7. CIPROFLOXACIN [Concomitant]
     Route: 065
     Dates: start: 20120903, end: 20120907
  8. CLEXANE [Concomitant]
     Route: 058
     Dates: start: 201209
  9. PANTAZOL [Concomitant]
     Route: 065
     Dates: start: 201209
  10. IMMUNOGLOBULIN [Concomitant]
     Route: 065
     Dates: start: 201209, end: 201209
  11. IMIPENEM [Concomitant]
     Dosage: 2000/2000 MG
     Route: 065
     Dates: start: 20120911, end: 20120919

REACTIONS (4)
  - Haemorrhage intracranial [Recovered/Resolved]
  - Wound infection [Recovered/Resolved]
  - Bronchopneumonia [Recovered/Resolved]
  - Cellulitis [Recovered/Resolved]
